FAERS Safety Report 24788586 (Version 1)
Quarter: 2024Q4

REPORT INFORMATION
  Report Type: Report from Study
  Country: NO (occurrence: NO)
  Receive Date: 20241230
  Receipt Date: 20241230
  Transmission Date: 20250115
  Serious: Yes (Other)
  Sender: ACCORD
  Company Number: None

PATIENT
  Sex: Female

DRUGS (13)
  1. METHOTREXATE [Suspect]
     Active Substance: METHOTREXATE
     Indication: Granulomatosis with polyangiitis
  2. MYCOPHENOLATE MOFETIL [Suspect]
     Active Substance: MYCOPHENOLATE MOFETIL
     Indication: Granulomatosis with polyangiitis
  3. TACROLIMUS [Suspect]
     Active Substance: TACROLIMUS
     Indication: Granulomatosis with polyangiitis
  4. AZATHIOPRINE [Suspect]
     Active Substance: AZATHIOPRINE
     Indication: Granulomatosis with polyangiitis
  5. HUMAN IMMUNOGLOBULIN G [Suspect]
     Active Substance: HUMAN IMMUNOGLOBULIN G
     Indication: Granulomatosis with polyangiitis
     Route: 042
  6. MABTHERA [Suspect]
     Active Substance: RITUXIMAB
     Indication: Granulomatosis with polyangiitis
     Dosage: X 2 INFUSIONS.  CUMULATIVE DOSE PRIOR TO AE: 2000 MG
     Route: 042
     Dates: start: 200611
  7. CYCLOPHOSPHAMIDE [Suspect]
     Active Substance: CYCLOPHOSPHAMIDE
     Indication: Granulomatosis with polyangiitis
     Dosage: 24 G
  8. EVEROLIMUS [Suspect]
     Active Substance: EVEROLIMUS
     Indication: Granulomatosis with polyangiitis
     Dates: start: 200611, end: 2007
  9. PROGRAF [Suspect]
     Active Substance: TACROLIMUS
     Indication: Granulomatosis with polyangiitis
  10. PREDNISOLONE [Concomitant]
     Active Substance: PREDNISOLONE
  11. TRIMETHOPRIM [Concomitant]
     Active Substance: TRIMETHOPRIM
  12. MYCOPHENOLATE MOFETIL [Concomitant]
     Active Substance: MYCOPHENOLATE MOFETIL
  13. CEFOTAXIME [Concomitant]
     Active Substance: CEFOTAXIME SODIUM

REACTIONS (5)
  - Neutropenia [Recovered/Resolved]
  - Pyrexia [Recovered/Resolved]
  - Oral candidiasis [Recovered/Resolved]
  - Off label use [Unknown]
  - Colitis [Recovering/Resolving]

NARRATIVE: CASE EVENT DATE: 20070501
